FAERS Safety Report 7762998-3 (Version None)
Quarter: 2011Q3

REPORT INFORMATION
  Report Type: 
  Country: None (occurrence: None)
  Receive Date: 20110920
  Receipt Date: 20110914
  Transmission Date: 20111222
  Serious: Yes (Other)
  Sender: FDA-Public Use
  Company Number: DE-JNJFOC-2010021879

PATIENT
  Sex: Female

DRUGS (3)
  1. NICOTINE [Suspect]
     Route: 065
  2. BUPROPION HCL [Suspect]
     Indication: SMOKING CESSATION THERAPY
     Dosage: DAILY DOSE TEXT: UNSPECIFIED
     Route: 065
  3. NICOTINE [Suspect]
     Indication: SMOKING CESSATION THERAPY
     Dosage: DAILY DOSE TEXT: UNSPECIFIED
     Route: 065

REACTIONS (3)
  - SUICIDAL IDEATION [None]
  - DRUG INEFFECTIVE [None]
  - DEPRESSION [None]
